FAERS Safety Report 20137393 (Version 4)
Quarter: 2022Q1

REPORT INFORMATION
  Report Type: Report from Study
  Country: ES (occurrence: ES)
  Receive Date: 20211201
  Receipt Date: 20220114
  Transmission Date: 20220423
  Serious: Yes (Hospitalization)
  Sender: FDA-Public Use
  Company Number: ES-SERVIER-S21013103

PATIENT

DRUGS (24)
  1. VIDAZA [Suspect]
     Active Substance: AZACITIDINE
     Indication: Acute myeloid leukaemia
     Dosage: 150 MG, DAILY
     Route: 058
     Dates: start: 20181015, end: 20181206
  2. VIDAZA [Suspect]
     Active Substance: AZACITIDINE
     Dosage: 143.25 MG, DAILY
     Route: 058
     Dates: start: 20181231, end: 20190108
  3. VIDAZA [Suspect]
     Active Substance: AZACITIDINE
     Dosage: 144 MG, DAILY
     Route: 058
     Dates: start: 20190204, end: 20190212
  4. VIDAZA [Suspect]
     Active Substance: AZACITIDINE
     Dosage: 145.5 MG, DAILY
     Route: 058
     Dates: start: 20190304, end: 20190312
  5. VIDAZA [Suspect]
     Active Substance: AZACITIDINE
     Dosage: 146.26 MG, DAILY
     Route: 058
     Dates: start: 20190408, end: 20190412
  6. VIDAZA [Suspect]
     Active Substance: AZACITIDINE
     Dosage: 146.25 MG, DAILY
     Route: 058
     Dates: start: 20190415, end: 20190416
  7. VIDAZA [Suspect]
     Active Substance: AZACITIDINE
     Dosage: 145.5 MG, DAILY
     Route: 058
     Dates: start: 20190506, end: 20190806
  8. VIDAZA [Suspect]
     Active Substance: AZACITIDINE
     Dosage: 149.2 MG, DAILY
     Route: 058
     Dates: start: 20190916, end: 20191022
  9. VIDAZA [Suspect]
     Active Substance: AZACITIDINE
     Dosage: 150 MG, DAILY
     Route: 058
     Dates: start: 20191125, end: 20191231
  10. VIDAZA [Suspect]
     Active Substance: AZACITIDINE
     Dosage: 147 MG, DAILY
     Route: 058
     Dates: start: 20200210, end: 20200520
  11. VIDAZA [Suspect]
     Active Substance: AZACITIDINE
     Dosage: 149.2 MG, DAILY
     Route: 058
     Dates: start: 20200608, end: 20200825
  12. VIDAZA [Suspect]
     Active Substance: AZACITIDINE
     Dosage: 150.8 MG, DAILY
     Route: 058
     Dates: start: 20201019, end: 20201027
  13. VIDAZA [Suspect]
     Active Substance: AZACITIDINE
     Dosage: 151.6 MG, DAILY
     Route: 058
     Dates: start: 20201116, end: 20210212
  14. VIDAZA [Suspect]
     Active Substance: AZACITIDINE
     Dosage: 150 MG, DAILY
     Route: 058
     Dates: start: 20210215, end: 20210216
  15. VIDAZA [Suspect]
     Active Substance: AZACITIDINE
     Dosage: 151.6 MG, DAILY
     Route: 058
     Dates: start: 20210322, end: 20210330
  16. VIDAZA [Suspect]
     Active Substance: AZACITIDINE
     Dosage: 150.8 MG, DAILY
     Route: 058
     Dates: start: 20210419, end: 20210817
  17. VIDAZA [Suspect]
     Active Substance: AZACITIDINE
     Dosage: 149.2 MG, DAILY
     Route: 058
     Dates: start: 20210927, end: 20211103
  18. VIDAZA [Suspect]
     Active Substance: AZACITIDINE
     Dosage: 147.8 MG, DAILY
     Route: 058
     Dates: start: 20220103
  19. TN UNSPECIFIED [Concomitant]
     Indication: Prophylaxis
     Dosage: 20 MG, QD
     Route: 048
     Dates: start: 2018
  20. TN UNSPECIFIED [Concomitant]
     Indication: Type 2 diabetes mellitus
     Dosage: 850 MG, QD
     Route: 048
     Dates: start: 20181004
  21. TN UNSPECIFIED [Concomitant]
     Indication: Insomnia
     Dosage: 2 MG, QD
     Route: 048
     Dates: start: 20181028
  22. TN UNSPECIFIED [Concomitant]
     Indication: Hyperuricaemia
     Dosage: 300 MG, QD
     Route: 048
     Dates: start: 20181112
  23. TN UNSPECIFIED [Concomitant]
     Indication: Type 2 diabetes mellitus
     Dosage: VARIABLE DOSES
     Route: 058
     Dates: start: 20181125
  24. TN UNSPECIFIED [Concomitant]
     Indication: Insomnia
     Dosage: 10 MG, QD
     Route: 048
     Dates: start: 20181202

REACTIONS (1)
  - Febrile neutropenia [Recovered/Resolved]

NARRATIVE: CASE EVENT DATE: 20211121
